FAERS Safety Report 9765600 (Version 1)
Quarter: 2013Q4

REPORT INFORMATION
  Report Type: Spontaneous
  Country: US (occurrence: US)
  Receive Date: 20131217
  Receipt Date: 20131217
  Transmission Date: 20140711
  Serious: No
  Sender: FDA-Public Use
  Company Number: US-GLAXOSMITHKLINE-A1008255A

PATIENT
  Age: 70 Year
  Sex: Male

DRUGS (3)
  1. VOTRIENT [Suspect]
     Indication: RENAL CANCER
     Dosage: 4TAB PER DAY
     Route: 048
     Dates: start: 20121211, end: 20121220
  2. VICODIN [Concomitant]
  3. CHERATUSSIN [Concomitant]

REACTIONS (2)
  - Fatigue [Recovering/Resolving]
  - Dyspnoea [Unknown]
